FAERS Safety Report 16371160 (Version 1)
Quarter: 2019Q2

REPORT INFORMATION
  Report Type: Spontaneous
  Country: US (occurrence: PT)
  Receive Date: 20190530
  Receipt Date: 20190530
  Transmission Date: 20190711
  Serious: Yes (Life-Threatening)
  Sender: FDA-Public Use
  Company Number: PT-FRESENIUS KABI-FK201905970

PATIENT
  Age: 51 Year
  Sex: Male
  Weight: 49 kg

DRUGS (1)
  1. CISPLATIN (MANUFACTURER UNKNOWN) [Suspect]
     Active Substance: CISPLATIN
     Indication: SQUAMOUS CELL CARCINOMA OF HEAD AND NECK
     Route: 042
     Dates: start: 20181015, end: 20181112

REACTIONS (1)
  - Stridor [Recovered/Resolved]

NARRATIVE: CASE EVENT DATE: 20190425
